FAERS Safety Report 16088236 (Version 2)
Quarter: 2019Q1

REPORT INFORMATION
  Report Type: Spontaneous
  Country: GB (occurrence: GB)
  Receive Date: 20190319
  Receipt Date: 20190325
  Transmission Date: 20190418
  Serious: No
  Sender: FDA-Public Use
  Company Number: GB-SA-2019SA071405

PATIENT
  Age: 36 Year
  Sex: Female

DRUGS (3)
  1. LEMTRADA [Suspect]
     Active Substance: ALEMTUZUMAB
     Dosage: UNK
     Route: 041
     Dates: start: 201705, end: 201705
  2. LEMTRADA [Suspect]
     Active Substance: ALEMTUZUMAB
     Indication: RELAPSING-REMITTING MULTIPLE SCLEROSIS
     Dosage: UNK
     Route: 041
     Dates: start: 201605, end: 201605
  3. FINGOLIMOD. [Concomitant]
     Active Substance: FINGOLIMOD
     Indication: JC POLYOMAVIRUS TEST POSITIVE
     Route: 065

REACTIONS (3)
  - Blood disorder [Unknown]
  - Mean cell volume increased [Unknown]
  - Haemoglobin decreased [Unknown]

NARRATIVE: CASE EVENT DATE: 201901
